FAERS Safety Report 6937344-5 (Version None)
Quarter: 2010Q3

REPORT INFORMATION
  Report Type: 
  Country: None (occurrence: None)
  Receive Date: 20100823
  Receipt Date: 20100811
  Transmission Date: 20110219
  Serious: Yes (Hospitalization)
  Sender: FDA-Public Use
  Company Number: US-WYE-H16906910

PATIENT
  Sex: Male
  Weight: 79.45 kg

DRUGS (5)
  1. PROTONIX [Suspect]
     Indication: GASTROOESOPHAGEAL REFLUX DISEASE
     Route: 048
     Dates: start: 19950101, end: 20100810
  2. BUSPIRONE HCL [Concomitant]
     Dosage: UNKNOWN
  3. LEXAPRO [Concomitant]
     Indication: DEPRESSION
  4. VITAMINS [Concomitant]
  5. LORAZEPAM [Concomitant]
     Indication: INSOMNIA
     Dosage: TAKES 2 AS NEEDED

REACTIONS (4)
  - ANGINA PECTORIS [None]
  - CORONARY ARTERY OCCLUSION [None]
  - MYOCARDIAL INFARCTION [None]
  - PAIN IN EXTREMITY [None]
